FAERS Safety Report 26179769 (Version 1)
Quarter: 2025Q4

REPORT INFORMATION
  Report Type: Spontaneous
  Country: US (occurrence: US)
  Receive Date: 20251219
  Receipt Date: 20251219
  Transmission Date: 20260117
  Serious: Yes (Death)
  Sender: CHIMERIX
  Company Number: US-CHIMERIX, INC.-US-CHI-25-000653

PATIENT
  Sex: Male

DRUGS (1)
  1. MODEYSO [Suspect]
     Active Substance: DORDAVIPRONE
     Indication: Brain stem glioma

REACTIONS (1)
  - Death [Fatal]
